FAERS Safety Report 4528589-2 (Version None)
Quarter: 2004Q4

REPORT INFORMATION
  Report Type: 
  Country: None (occurrence: None)
  Receive Date: 20041216
  Receipt Date: 20041210
  Transmission Date: 20050328
  Serious: Yes (Death)
  Sender: FDA-Public Use
  Company Number: PHBS2004CN16555

PATIENT
  Sex: Female

DRUGS (5)
  1. LESCOL [Suspect]
     Indication: HYPERLIPIDAEMIA
     Dosage: 20 MG/DAY
     Dates: start: 20040423, end: 20040515
  2. BETALOC [Concomitant]
  3. NIMODIPINE [Concomitant]
  4. ISOSORBIDE DINITRATE [Concomitant]
  5. ASPIRIN [Concomitant]

REACTIONS (4)
  - ALANINE AMINOTRANSFERASE INCREASED [None]
  - ASPARTATE AMINOTRANSFERASE INCREASED [None]
  - GINGIVAL BLEEDING [None]
  - HEPATIC NECROSIS [None]
